FAERS Safety Report 19429798 (Version 3)
Quarter: 2021Q3

REPORT INFORMATION
  Report Type: Spontaneous
  Country: US (occurrence: US)
  Receive Date: 20210617
  Receipt Date: 20210726
  Transmission Date: 20211014
  Serious: Yes (Hospitalization, Other)
  Sender: FDA-Public Use
  Company Number: US-BIOVITRUM-2021US1371

PATIENT
  Age: 68 Year
  Sex: Male

DRUGS (3)
  1. KINERET [Suspect]
     Active Substance: ANAKINRA
     Indication: ENCEPHALOMYELITIS
     Route: 058
     Dates: start: 202101
  2. KINERET [Suspect]
     Active Substance: ANAKINRA
     Indication: MENINGITIS
     Dosage: 300 MG/ 200 MG (EVERY MORNING/ EVERY EVENING)
     Route: 058
     Dates: start: 20191207
  3. KINERET [Suspect]
     Active Substance: ANAKINRA
     Indication: ENCEPHALITIS
     Dosage: 300MG IN THE MORNING AND 200MG AT NIGHT DAILY?100 MG DAILY
     Route: 058
     Dates: start: 20210129

REACTIONS (9)
  - Meningitis [Unknown]
  - Condition aggravated [Unknown]
  - Irritability [Unknown]
  - Off label use [Not Recovered/Not Resolved]
  - Injection site reaction [Recovered/Resolved]
  - Encephalitis [Unknown]
  - Product dose omission issue [Unknown]
  - Encephalomyelitis [Unknown]
  - Emotional disorder [Unknown]

NARRATIVE: CASE EVENT DATE: 20191207
